FAERS Safety Report 8560343 (Version 9)
Quarter: 2012Q4

REPORT INFORMATION
  Report Type: Report from Study
  Country: JP (occurrence: US)
  Receive Date: 20120514
  Receipt Date: 20121005
  Transmission Date: 20130627
  Serious: Yes (Hospitalization, Other)
  Sender: FDA-Public Use
  Company Number: US-BRISTOL-MYERS SQUIBB COMPANY-16587156

PATIENT
  Age: 53 Year
  Sex: Male

DRUGS (8)
  1. ARIPIPRAZOLE IM DEPOT [Suspect]
     Indication: SCHIZOPHRENIA
     Dosage: Dose on 16Mar2012
     Route: 030
     Dates: start: 20120221, end: 20120329
  2. CLONAZEPAM [Concomitant]
     Dates: start: 20110728
  3. BENZATROPINE [Concomitant]
     Indication: TREMOR
     Dates: start: 20110728
  4. RESTORIL [Concomitant]
     Dates: start: 20120222
  5. GABAPENTIN [Concomitant]
     Dates: start: 20120307
  6. KLONOPIN [Concomitant]
     Dates: start: 20120316
  7. METFORMIN [Concomitant]
     Dates: start: 20120307
  8. LURASIDONE HYDROCHLORIDE [Concomitant]
     Dates: start: 20111214, end: 20120221

REACTIONS (5)
  - Rhabdomyolysis [Recovered/Resolved]
  - Schizophrenia, paranoid type [Recovered/Resolved]
  - Blood creatine phosphokinase increased [Recovered/Resolved]
  - Hepatic steatosis [None]
  - Blood glucose abnormal [None]
